FAERS Safety Report 5132717-8 (Version None)
Quarter: 2006Q4

REPORT INFORMATION
  Report Type: 
  Country: None (occurrence: None)
  Receive Date: 20061023
  Receipt Date: 20051214
  Transmission Date: 20070319
  Serious: Yes (Hospitalization)
  Sender: FDA-Public Use
  Company Number: PL-GLAXOSMITHKLINE-B0403770A

PATIENT
  Age: 49 Year
  Sex: Female
  Weight: 58 kg

DRUGS (2)
  1. ROPINIROLE HCL [Suspect]
     Indication: PARKINSON'S DISEASE
  2. L-DOPA [Concomitant]

REACTIONS (2)
  - DRUG INEFFECTIVE [None]
  - DYSKINESIA [None]
